FAERS Safety Report 8501699 (Version 4)
Quarter: 2017Q3

REPORT INFORMATION
  Report Type: Spontaneous
  Country: US (occurrence: US)
  Receive Date: 20120410
  Receipt Date: 20170724
  Transmission Date: 20171128
  Serious: Yes (Hospitalization, Congenital Anomaly, Other)
  Sender: FDA-Public Use
  Company Number: US-ELI_LILLY_AND_COMPANY-US201203008977

PATIENT
  Age: 2 Day
  Sex: Female

DRUGS (4)
  1. PROZAC [Suspect]
     Active Substance: FLUOXETINE HYDROCHLORIDE
     Indication: PERINATAL DEPRESSION
     Dosage: 20 MG, QD
     Route: 064
     Dates: start: 2000
  2. PROZAC [Suspect]
     Active Substance: FLUOXETINE HYDROCHLORIDE
     Dosage: 40 MG, QD
     Route: 064
  3. PROZAC [Suspect]
     Active Substance: FLUOXETINE HYDROCHLORIDE
     Dosage: 40 MG, QD
     Route: 064
  4. PROZAC [Suspect]
     Active Substance: FLUOXETINE HYDROCHLORIDE
     Indication: PERINATAL DEPRESSION
     Dosage: 20 MG, QD
     Route: 064
     Dates: start: 2000

REACTIONS (10)
  - Dyspepsia [Unknown]
  - Hypertension [Unknown]
  - Sinus tachycardia [Unknown]
  - Presyncope [Unknown]
  - Cardiac disorder [Unknown]
  - Supravalvular aortic stenosis [Unknown]
  - Foetal exposure during pregnancy [Unknown]
  - Dyspnoea [Unknown]
  - Cardiac murmur [Unknown]
  - Syncope [Unknown]

NARRATIVE: CASE EVENT DATE: 20010720
